FAERS Safety Report 9388910 (Version 2)
Quarter: 2013Q3

REPORT INFORMATION
  Report Type: Spontaneous
  Country: GB (occurrence: GB)
  Receive Date: 20130708
  Receipt Date: 20130722
  Transmission Date: 20140515
  Serious: Yes (Death, Other)
  Sender: FDA-Public Use
  Company Number: PHHY2013GB070435

PATIENT
  Age: 63 Year
  Sex: Female

DRUGS (2)
  1. CARBOPLATIN [Suspect]
     Indication: CHEMOTHERAPY
  2. PACLITAXEL [Suspect]
     Indication: CHEMOTHERAPY
     Dosage: 75 MG/M2

REACTIONS (18)
  - Multi-organ failure [Fatal]
  - Renal failure acute [Unknown]
  - Hyperkalaemia [Unknown]
  - Hypocalcaemia [Unknown]
  - Hyperphosphataemia [Unknown]
  - Blood lactate dehydrogenase increased [Unknown]
  - Blood uric acid increased [Unknown]
  - Pulmonary oedema [Unknown]
  - Metabolic acidosis [Unknown]
  - Abdominal pain [Unknown]
  - Coagulopathy [Unknown]
  - Ischaemic hepatitis [Unknown]
  - Intestinal infarction [Unknown]
  - Tumour lysis syndrome [Unknown]
  - Respiratory failure [Unknown]
  - Hepatic vein thrombosis [Unknown]
  - Liver function test abnormal [Unknown]
  - Platelet count decreased [Unknown]
